FAERS Safety Report 5304194-5 (Version None)
Quarter: 2007Q2

REPORT INFORMATION
  Report Type: 
  Country: None (occurrence: None)
  Receive Date: 20070423
  Receipt Date: 20070411
  Transmission Date: 20071010
  Serious: Yes (Other)
  Sender: FDA-Public Use
  Company Number: PHEH2007US04956

PATIENT
  Age: 75 Year
  Sex: Female

DRUGS (1)
  1. ZELNORM [Suspect]

REACTIONS (4)
  - ASTHENIA [None]
  - DIZZINESS [None]
  - DYSPNOEA [None]
  - LOSS OF CONSCIOUSNESS [None]
